FAERS Safety Report 24232865 (Version 1)
Quarter: 2024Q3

REPORT INFORMATION
  Report Type: Spontaneous
  Country: US (occurrence: None)
  Receive Date: 20240820
  Receipt Date: 20240820
  Transmission Date: 20241016
  Serious: Yes (Hospitalization, Other)
  Sender: Public
  Company Number: None

PATIENT
  Age: 95 Year
  Sex: 0
  Weight: 56.2 kg

DRUGS (1)
  1. FERRLECIT [Suspect]
     Active Substance: SODIUM FERRIC GLUCONATE COMPLEX
     Dates: start: 20240812, end: 20240812

REACTIONS (8)
  - Infusion related reaction [None]
  - Hypersensitivity [None]
  - Nausea [None]
  - Diarrhoea [None]
  - Vomiting [None]
  - Vital functions abnormal [None]
  - Heart rate decreased [None]
  - Abdominal pain [None]

NARRATIVE: CASE EVENT DATE: 20240812
